FAERS Safety Report 13173339 (Version 3)
Quarter: 2019Q1

REPORT INFORMATION
  Report Type: Spontaneous
  Country: US (occurrence: US)
  Receive Date: 20170131
  Receipt Date: 20190204
  Transmission Date: 20190417
  Serious: No
  Sender: FDA-Public Use
  Company Number: US-ABBVIE-16K-163-1654811-00

PATIENT

DRUGS (1)
  1. HUMIRA [Suspect]
     Active Substance: ADALIMUMAB
     Indication: PSORIASIS
     Route: 058

REACTIONS (10)
  - Frustration tolerance decreased [Unknown]
  - Alopecia [Unknown]
  - Hair texture abnormal [Unknown]
  - Pain [Unknown]
  - Nail disorder [Unknown]
  - Photosensitivity reaction [Unknown]
  - Psoriasis [Unknown]
  - Sensitivity to weather change [Unknown]
  - Fatigue [Unknown]
  - Hyperhidrosis [Unknown]
